FAERS Safety Report 18066335 (Version 4)
Quarter: 2020Q3

REPORT INFORMATION
  Report Type: Spontaneous
  Country: GB (occurrence: GB)
  Receive Date: 20200724
  Receipt Date: 20200811
  Transmission Date: 20201103
  Serious: Yes (Hospitalization, Other)
  Sender: FDA-Public Use
  Company Number: GB-PFIZER INC-2020279736

PATIENT
  Age: 75 Year
  Sex: Male

DRUGS (8)
  1. LANSOPRAZOLE. [Suspect]
     Active Substance: LANSOPRAZOLE
     Indication: HORMONE-REFRACTORY PROSTATE CANCER
     Dosage: 30 MILLIGRAM, QD
     Route: 048
     Dates: start: 2015
  2. PARACETAMOL [Suspect]
     Active Substance: ACETAMINOPHEN
     Indication: PAIN
     Dosage: 1 G
     Route: 048
     Dates: start: 20170606
  3. TAMSULOSIN HYDROCHLORIDE. [Suspect]
     Active Substance: TAMSULOSIN HYDROCHLORIDE
     Indication: HORMONE-REFRACTORY PROSTATE CANCER
     Dosage: 400 MG, DAILY
     Route: 048
     Dates: start: 2006
  4. DEXAMETHASONE. [Suspect]
     Active Substance: DEXAMETHASONE
     Indication: HORMONE-REFRACTORY PROSTATE CANCER
     Dosage: 0.5 MG, DAILY
     Route: 048
     Dates: start: 2015
  5. CLEXANE [Suspect]
     Active Substance: ENOXAPARIN SODIUM
     Indication: THROMBOSIS PROPHYLAXIS
     Dosage: UNK
     Route: 058
     Dates: start: 2013, end: 20190405
  6. DOXAZOSIN MESILATE [Suspect]
     Active Substance: DOXAZOSIN MESYLATE
     Indication: HORMONE-REFRACTORY PROSTATE CANCER
     Dosage: 4 MG, DAILY
     Route: 048
     Dates: start: 2013
  7. CLEXANE [Suspect]
     Active Substance: ENOXAPARIN SODIUM
     Dosage: 100 MG, DAILY (2 SEPARATE DOSES)
     Route: 058
     Dates: start: 20190410
  8. LACTULOSE. [Concomitant]
     Active Substance: LACTULOSE
     Dosage: 2X/DAY (3.4G/5ML SOLUTION) Q12H
     Route: 048

REACTIONS (10)
  - Hydronephrosis [Unknown]
  - Blood disorder [Unknown]
  - Staphylococcal infection [Unknown]
  - Venous thrombosis limb [Unknown]
  - Product use in unapproved indication [Unknown]
  - Haemoglobin decreased [Unknown]
  - Off label use [Unknown]
  - Sepsis [Unknown]
  - Haematuria [Recovered/Resolved]
  - Adrenocortical insufficiency acute [Unknown]

NARRATIVE: CASE EVENT DATE: 2015
